FAERS Safety Report 6781093-3 (Version None)
Quarter: 2010Q2

REPORT INFORMATION
  Report Type: 
  Country: None (occurrence: None)
  Receive Date: 20100520
  Receipt Date: 20090610
  Transmission Date: 20101027
  Serious: Yes (Hospitalization, Other)
  Sender: FDA-Public Use
  Company Number: 2008054104

PATIENT
  Age: 51 Year
  Sex: Female
  Weight: 57 kg

DRUGS (5)
  1. PROVERA [Suspect]
     Indication: HORMONE REPLACEMENT THERAPY
     Dosage: 2.5 MG, ORAL ; 10 MG, ORAL
     Route: 048
     Dates: start: 19890802, end: 19940809
  2. PROVERA [Suspect]
     Indication: HORMONE REPLACEMENT THERAPY
     Dosage: 2.5 MG, ORAL ; 10 MG, ORAL
     Route: 048
     Dates: start: 19890802, end: 19940809
  3. PREMARIN [Suspect]
     Indication: HORMONE REPLACEMENT THERAPY
     Dosage: 0.625 MG
     Dates: start: 19890802, end: 19940809
  4. SYNTHROID [Concomitant]
  5. COUMADIN [Concomitant]

REACTIONS (1)
  - BREAST CANCER FEMALE [None]
